FAERS Safety Report 23895359 (Version 1)
Quarter: 2024Q2

REPORT INFORMATION
  Report Type: Spontaneous
  Country: JP (occurrence: JP)
  Receive Date: 20240524
  Receipt Date: 20240524
  Transmission Date: 20240715
  Serious: Yes (Hospitalization)
  Sender: FDA-Public Use
  Company Number: JP-Merck Healthcare KGaA-2024027253

PATIENT
  Age: 85 Year
  Sex: Male

DRUGS (5)
  1. METGLUCO [Suspect]
     Active Substance: METFORMIN HYDROCHLORIDE
     Indication: Type 2 diabetes mellitus
     Route: 048
     Dates: end: 20240508
  2. VILDAGLIPTIN [Suspect]
     Active Substance: VILDAGLIPTIN
     Indication: Type 2 diabetes mellitus
     Route: 048
     Dates: end: 20240508
  3. GLIMEPIRIDE [Suspect]
     Active Substance: GLIMEPIRIDE
     Indication: Type 2 diabetes mellitus
     Route: 048
     Dates: end: 20240508
  4. MIGLITOL [Suspect]
     Active Substance: MIGLITOL
     Indication: Type 2 diabetes mellitus
     Route: 048
     Dates: end: 20240508
  5. TEPRENONE [Suspect]
     Active Substance: TEPRENONE
     Indication: Product used for unknown indication

REACTIONS (4)
  - Pemphigoid [Unknown]
  - Cutaneous symptom [Unknown]
  - Dermatitis [Unknown]
  - Glycosylated haemoglobin increased [Unknown]

NARRATIVE: CASE EVENT DATE: 20240501
